FAERS Safety Report 15980306 (Version 4)
Quarter: 2023Q4

REPORT INFORMATION
  Report Type: Report from Study
  Country: CR (occurrence: CR)
  Receive Date: 20190219
  Receipt Date: 20231202
  Transmission Date: 20240110
  Serious: Yes (Life-Threatening, Other)
  Sender: FDA-Public Use
  Company Number: PHHY2019CR037111

PATIENT
  Age: 87 Year
  Sex: Female
  Weight: 67 kg

DRUGS (7)
  1. DIOVAN [Suspect]
     Active Substance: VALSARTAN
     Indication: Hypertension
     Dosage: 1 DOSAGE FORM, QD
     Route: 048
     Dates: start: 2019, end: 20201007
  2. EXFORGE [Suspect]
     Active Substance: AMLODIPINE BESYLATE\VALSARTAN
     Indication: Hypertension
     Dosage: 10/320 MG (AT THE BEGINING)
     Route: 065
     Dates: start: 20201008, end: 20210811
  3. EXFORGE [Suspect]
     Active Substance: AMLODIPINE BESYLATE\VALSARTAN
     Dosage: 5/320 MG (APPROXIMATLY 2 YEARS AGO)
     Route: 065
     Dates: start: 20210811, end: 2021
  4. EXFORGE [Suspect]
     Active Substance: AMLODIPINE BESYLATE\VALSARTAN
     Dosage: 5/320 MG (1 MONTH AGO)
     Route: 065
  5. EXFORGE [Suspect]
     Active Substance: AMLODIPINE BESYLATE\VALSARTAN
     Dosage: 5/320 MG, QD
     Route: 065
     Dates: start: 20231125
  6. INDAPAMIDE [Concomitant]
     Active Substance: INDAPAMIDE
     Indication: Hypertension
     Dosage: 1 DOSAGE FORM, QD
     Route: 048
  7. BISOPROLOL FUMARATE [Concomitant]
     Active Substance: BISOPROLOL FUMARATE
     Indication: Hypertension
     Dosage: 1 DOSAGE FORM, QD
     Route: 048

REACTIONS (18)
  - Hepatic steatosis [Unknown]
  - Peripheral swelling [Recovered/Resolved]
  - Visual impairment [Unknown]
  - Dairy intolerance [Recovered/Resolved]
  - General physical health deterioration [Unknown]
  - Memory impairment [Recovering/Resolving]
  - Peripheral vascular disorder [Unknown]
  - Blood pressure diastolic decreased [Recovered/Resolved]
  - Dehydration [Unknown]
  - Heart rate abnormal [Recovering/Resolving]
  - Vitamin D deficiency [Unknown]
  - Viral infection [Recovered/Resolved]
  - Diarrhoea [Recovered/Resolved]
  - Myalgia [Unknown]
  - Depression [Recovering/Resolving]
  - Constipation [Unknown]
  - Blood pressure increased [Recovering/Resolving]
  - Hypertension [Recovering/Resolving]

NARRATIVE: CASE EVENT DATE: 20200101
